FAERS Safety Report 23097320 (Version 1)
Quarter: 2023Q4

REPORT INFORMATION
  Report Type: Spontaneous
  Country: CA (occurrence: CA)
  Receive Date: 20231023
  Receipt Date: 20231023
  Transmission Date: 20240110
  Serious: Yes (Other)
  Sender: FDA-Public Use
  Company Number: None

PATIENT
  Age: 56 Year
  Sex: Female

DRUGS (7)
  1. METHOTREXATE [Suspect]
     Active Substance: METHOTREXATE
     Indication: Rheumatoid arthritis
  2. CEFIXIME [Concomitant]
     Active Substance: CEFIXIME
     Dosage: FREQUENCY: AS REQUIRED
  3. DICLOFENAC [Concomitant]
     Active Substance: DICLOFENAC
  4. ESOMEPRAZOLE SODIUM [Concomitant]
     Active Substance: ESOMEPRAZOLE SODIUM
     Dosage: FREQUENCY: AS REQUIRED
  5. FOLIC ACID [Concomitant]
     Active Substance: FOLIC ACID
  6. LYRICA [Concomitant]
     Active Substance: PREGABALIN
  7. METHOTREXATE [Suspect]
     Active Substance: METHOTREXATE
     Indication: Rheumatoid arthritis
     Route: 048

REACTIONS (3)
  - Jaw disorder [Not Recovered/Not Resolved]
  - Joint swelling [Not Recovered/Not Resolved]
  - Tender joint count [Not Recovered/Not Resolved]
